FAERS Safety Report 7325032-5 (Version None)
Quarter: 2011Q1

REPORT INFORMATION
  Report Type: 
  Country: None (occurrence: None)
  Receive Date: 20110302
  Receipt Date: 20110216
  Transmission Date: 20110831
  Serious: Yes (Life-Threatening, Disabling, Other)
  Sender: FDA-Public Use
  Company Number: US-BAYER-2011-016365

PATIENT
  Sex: Male

DRUGS (1)
  1. AVELOX [Suspect]
     Indication: SINUSITIS
     Dosage: 400 MG, QD
     Route: 048
     Dates: start: 20110101

REACTIONS (6)
  - LOSS OF CONSCIOUSNESS [None]
  - PHARYNGEAL OEDEMA [None]
  - VOMITING [None]
  - SWOLLEN TONGUE [None]
  - HYPERSENSITIVITY [None]
  - PRURITUS [None]
